FAERS Safety Report 9597649 (Version 2)
Quarter: 2013Q4

REPORT INFORMATION
  Report Type: Spontaneous
  Country: ID (occurrence: ID)
  Receive Date: 20131004
  Receipt Date: 20131022
  Transmission Date: 20140711
  Serious: Yes (Death)
  Sender: FDA-Public Use
  Company Number: ID-B.I. PHARMACEUTICALS,INC./RIDGEFIELD-2013-BI-31355IP

PATIENT
  Sex: 0

DRUGS (2)
  1. PRADAXA [Suspect]
  2. PLAVIX [Concomitant]

REACTIONS (1)
  - Intracranial haematoma [Fatal]
